FAERS Safety Report 6092378-0 (Version None)
Quarter: 2009Q1

REPORT INFORMATION
  Report Type: 
  Country: None (occurrence: None)
  Receive Date: 20090223
  Receipt Date: 20090223
  Transmission Date: 20090719
  Serious: Yes (Other)
  Sender: FDA-Public Use
  Company Number: None

PATIENT
  Sex: Female

DRUGS (1)
  1. CLONAZEPAM [Suspect]
     Indication: PANIC DISORDER
     Dosage: # 60 ONE B.I.D PO
     Route: 048
     Dates: start: 20020501, end: 20020611

REACTIONS (6)
  - HEADACHE [None]
  - MALAISE [None]
  - MIDDLE INSOMNIA [None]
  - MUSCLE SPASMS [None]
  - NAUSEA [None]
  - PRODUCT QUALITY ISSUE [None]
